FAERS Safety Report 4470181-2 (Version None)
Quarter: 2004Q3

REPORT INFORMATION
  Report Type: 
  Country: None (occurrence: None)
  Receive Date: 20040910
  Receipt Date: 20040708
  Transmission Date: 20050211
  Serious: No
  Sender: FDA-Public Use
  Company Number: 2004-00184

PATIENT
  Age: 63 Year
  Sex: Male
  Weight: 97.1 kg

DRUGS (2)
  1. VELCADE [Suspect]
     Indication: MULTIPLE MYELOMA
     Dosage: 2.80 MG, IV BOLUS
     Route: 040
     Dates: start: 20040503, end: 20040624
  2. MULTIVITAMIN [Concomitant]

REACTIONS (2)
  - HYPERTENSION [None]
  - NEUROPATHY PERIPHERAL [None]
